FAERS Safety Report 6595428-8 (Version None)
Quarter: 2010Q1

REPORT INFORMATION
  Report Type: 
  Country: None (occurrence: None)
  Receive Date: 20100223
  Receipt Date: 20100212
  Transmission Date: 20100710
  Serious: No
  Sender: FDA-Public Use
  Company Number: US-BAYER-201012911NA

PATIENT
  Age: 24 Year
  Sex: Female

DRUGS (1)
  1. MIRENA [Suspect]
     Indication: INTRA-UTERINE CONTRACEPTIVE DEVICE
     Dosage: FREQUENCY: CONTINUOUS
     Route: 015
     Dates: start: 20060401

REACTIONS (6)
  - MENSTRUATION DELAYED [None]
  - MUSCLE SPASMS [None]
  - OVARIAN CYST [None]
  - PREGNANCY TEST NEGATIVE [None]
  - PREGNANCY TEST POSITIVE [None]
  - VAGINAL HAEMORRHAGE [None]
